FAERS Safety Report 11266834 (Version 1)
Quarter: 2015Q3

REPORT INFORMATION
  Report Type: Spontaneous
  Country: SI (occurrence: SI)
  Receive Date: 20150713
  Receipt Date: 20150713
  Transmission Date: 20151125
  Serious: Yes (Hospitalization)
  Sender: FDA-Public Use
  Company Number: SI-BAYER-2015-375992

PATIENT
  Age: 66 Year
  Sex: Male

DRUGS (10)
  1. VASOPRESSIN. [Suspect]
     Active Substance: VASOPRESSIN
     Indication: BRADYCARDIA
     Dosage: 0.03 U/MIN
  2. IBUPROFEN. [Suspect]
     Active Substance: IBUPROFEN
     Dosage: 5000 MG, UNK
  3. ACETYLSALICYLIC ACID (} 100 MG) [Suspect]
     Active Substance: ASPIRIN
     Dosage: 4000 MG, UNK
  4. BISOPROLOL [Suspect]
     Active Substance: BISOPROLOL
     Dosage: 450 MG, UNK
  5. DOXAZOSIN [Suspect]
     Active Substance: DOXAZOSIN\DOXAZOSIN MESYLATE
     Dosage: 200 MG, UNK
  6. TORASEMIDE [Suspect]
     Active Substance: TORSEMIDE
     Dosage: 150 MG, UNK
  7. AMLODIPINE [Suspect]
     Active Substance: AMLODIPINE BESYLATE
     Dosage: 300 MG, UNK
  8. NIFEDIPINE. [Suspect]
     Active Substance: NIFEDIPINE
     Dosage: 600 MG, UNK
  9. VASOPRESSIN. [Suspect]
     Active Substance: VASOPRESSIN
     Indication: LEFT VENTRICULAR DYSFUNCTION
  10. VASOPRESSIN. [Suspect]
     Active Substance: VASOPRESSIN
     Indication: HYPOTENSION

REACTIONS (7)
  - Metabolic acidosis [Recovered/Resolved]
  - Bradycardia [Recovered/Resolved]
  - Left ventricular dysfunction [Recovered/Resolved]
  - Hypotension [Recovered/Resolved]
  - Overdose [Recovered/Resolved]
  - Loss of consciousness [Recovered/Resolved]
  - Suicide attempt [Recovered/Resolved]
